FAERS Safety Report 10218406 (Version 2)
Quarter: 2014Q4

REPORT INFORMATION
  Report Type: Spontaneous
  Country: US (occurrence: US)
  Receive Date: 20140605
  Receipt Date: 20141216
  Transmission Date: 20150528
  Serious: Yes (Other)
  Sender: FDA-Public Use
  Company Number: US-MUNDIPHARMA DS AND PHARMACOVIGILANCE-USA-2014-0114419

PATIENT
  Age: 44 Year
  Sex: Male
  Weight: 77.98 kg

DRUGS (3)
  1. XIFAXAN [Concomitant]
     Active Substance: RIFAXIMIN
     Indication: PRODUCT USED FOR UNKNOWN INDICATION
     Dosage: 500 MG, BID
     Dates: start: 20131211
  2. OXYCONTIN [Suspect]
     Active Substance: OXYCODONE HYDROCHLORIDE
     Indication: PRODUCT USED FOR UNKNOWN INDICATION
  3. LYRICA [Suspect]
     Active Substance: PREGABALIN
     Indication: PRODUCT USED FOR UNKNOWN INDICATION
     Dosage: UNKNOWN
     Route: 048

REACTIONS (10)
  - Liver disorder [Not Recovered/Not Resolved]
  - Fall [Unknown]
  - Loss of consciousness [Unknown]
  - Pelvic fracture [Unknown]
  - Rib fracture [Unknown]
  - Femur fracture [Unknown]
  - Splenic rupture [Unknown]
  - Hip fracture [Unknown]
  - Drug ineffective [Unknown]
  - Skull fracture [Unknown]

NARRATIVE: CASE EVENT DATE: 20131206
